FAERS Safety Report 25754926 (Version 1)
Quarter: 2025Q3

REPORT INFORMATION
  Report Type: Spontaneous
  Country: CN (occurrence: CN)
  Receive Date: 20250903
  Receipt Date: 20250903
  Transmission Date: 20251020
  Serious: Yes (Hospitalization, Other)
  Sender: RANBAXY
  Company Number: CN-SUN PHARMACEUTICAL INDUSTRIES INC-2025R1-525533

PATIENT
  Age: 29 Year
  Sex: Male

DRUGS (1)
  1. IBUPROFEN [Suspect]
     Active Substance: IBUPROFEN
     Indication: Myalgia
     Route: 065

REACTIONS (5)
  - Acute kidney injury [Unknown]
  - Cardiomyopathy [Unknown]
  - Drug-induced liver injury [Recovering/Resolving]
  - Hepatic failure [Unknown]
  - Unmasking of previously unidentified disease [Unknown]
